FAERS Safety Report 22028765 (Version 1)
Quarter: 2023Q1

REPORT INFORMATION
  Report Type: Spontaneous
  Country: AU (occurrence: AU)
  Receive Date: 20230223
  Receipt Date: 20230223
  Transmission Date: 20230417
  Serious: Yes (Other)
  Sender: FDA-Public Use
  Company Number: AU-SANOFI-01497863

PATIENT
  Sex: Female

DRUGS (3)
  1. SELENIUM SULFIDE [Suspect]
     Active Substance: SELENIUM SULFIDE
     Dosage: UNK
     Route: 065
  2. SELENIUM SULFIDE [Suspect]
     Active Substance: SELENIUM SULFIDE
     Dosage: UNK
     Route: 065
  3. NIZORAL [Concomitant]
     Active Substance: KETOCONAZOLE
     Dosage: UNK
     Route: 065

REACTIONS (5)
  - Primary pulmonary melanoma [Unknown]
  - Hair disorder [Unknown]
  - Eye disorder [Unknown]
  - Insomnia [Unknown]
  - Drug ineffective [Unknown]
